FAERS Safety Report 22238658 (Version 4)
Quarter: 2023Q2

REPORT INFORMATION
  Report Type: Report from Study
  Country: CY (occurrence: CY)
  Receive Date: 20230421
  Receipt Date: 20230627
  Transmission Date: 20230721
  Serious: Yes (Other)
  Sender: FDA-Public Use
  Company Number: CY-CELLTRION INC.-2023CY008063

PATIENT

DRUGS (21)
  1. TRASTUZUMAB [Suspect]
     Active Substance: TRASTUZUMAB
     Indication: HER2 positive breast cancer
     Dosage: 6 MG/KG, EVERY 3 WEEKS  (DATE OF MOST RECENT DOSE: 04/JUL/2018)
     Route: 042
     Dates: start: 20160830
  2. LAPATINIB [Suspect]
     Active Substance: LAPATINIB
     Indication: HER2 positive breast cancer
     Dosage: 1000 MG, 1 DAY (MOST RECENT DOSE ON 08/APR/2021)
     Route: 048
     Dates: start: 20180727
  3. ADO-TRASTUZUMAB EMTANSINE [Suspect]
     Active Substance: ADO-TRASTUZUMAB EMTANSINE
     Indication: HER2 positive breast cancer
     Dosage: 3.6 MG/KG, EVERY 3 WEEKS
     Route: 042
     Dates: start: 20210422
  4. CAPECITABINE [Suspect]
     Active Substance: CAPECITABINE
     Indication: HER2 positive breast cancer
     Dosage: 1500 MG (DATE OF MOST RECENT DOSE: 08/APR/2021)
     Route: 048
     Dates: start: 20180704
  5. LETROZOLE [Suspect]
     Active Substance: LETROZOLE
     Indication: HER2 positive breast cancer
     Dosage: 2.5 MG, 1 DAY (MOST RECENT DOSE OF LETROZOLE WAS ON 04/JUL/2018)
     Route: 048
     Dates: start: 20170201
  6. PACLITAXEL [Suspect]
     Active Substance: PACLITAXEL
     Indication: HER2 positive breast cancer
     Dosage: 80 MG/M2, 1 WEEK (MOST RECENT DOSE PRIOR TO EVENT 11/JAN/2017)
     Route: 042
     Dates: start: 20160823
  7. DEXPANTHENOL [Concomitant]
     Active Substance: DEXPANTHENOL
     Dosage: ONGOING = CHECKED
     Dates: start: 20190525
  8. DENOSUMAB [Concomitant]
     Active Substance: DENOSUMAB
     Dosage: ONGOING = CHECKED
     Dates: start: 20190207
  9. ZOLEDRONIC ACID [Concomitant]
     Active Substance: ZOLEDRONIC ACID
     Dosage: ONGOING = CHECKED
     Dates: start: 20160913, end: 20181212
  10. GLUCOPHAGE [Concomitant]
     Active Substance: METFORMIN HYDROCHLORIDE
     Dosage: ONGOING = CHECKED
     Dates: start: 20141215
  11. AMLODIPINE [Concomitant]
     Active Substance: AMLODIPINE BESYLATE
     Dosage: UNK
     Dates: start: 20141215
  12. PFIZER-BIONTECH COVID-19 VACCINE [Concomitant]
     Active Substance: TOZINAMERAN
     Dosage: UNK
     Dates: start: 20210720, end: 20210720
  13. RAMIPRIL [Concomitant]
     Active Substance: RAMIPRIL
     Dosage: ONGOING = NOT CHECKED
     Dates: start: 20141215, end: 20180827
  14. FUSICORT [Concomitant]
     Indication: Paronychia
     Dosage: ONGOING = CHECKED
     Dates: start: 20211210, end: 20220511
  15. FUSICORT [Concomitant]
     Dosage: ONGOING = CHECKED
     Dates: start: 20210806, end: 20211118
  16. CLORAMBUCILE [Concomitant]
     Dosage: UNK
     Dates: start: 20161101, end: 20170429
  17. COMIRNATY [Concomitant]
     Active Substance: TOZINAMERAN
     Dosage: UNK
     Dates: start: 20210720, end: 20210720
  18. LEVOTHYROXINE [Concomitant]
     Active Substance: LEVOTHYROXINE
     Dosage: UNK
     Dates: start: 20141215
  19. BISOPROLOL FUMARATE [Concomitant]
     Active Substance: BISOPROLOL FUMARATE
     Dosage: UNK
     Dates: start: 20141215
  20. DEXPANTHENOL [Concomitant]
     Active Substance: DEXPANTHENOL
     Dosage: UNK
     Dates: start: 20190525
  21. FUSIDIC ACID [Concomitant]
     Active Substance: FUSIDIC ACID
     Indication: Paronychia
     Dosage: ONGOING = CHECKED
     Dates: start: 20191206, end: 20211018

REACTIONS (23)
  - Neuropathy peripheral [Recovered/Resolved]
  - Vertigo [Recovered/Resolved]
  - Onychomadesis [Recovered/Resolved]
  - Paronychia [Recovered/Resolved]
  - Paronychia [Recovered/Resolved]
  - Hypersensitivity [Recovered/Resolved]
  - Anxiety [Not Recovered/Not Resolved]
  - Diarrhoea [Recovered/Resolved]
  - Nausea [Recovered/Resolved]
  - Fatigue [Recovered/Resolved]
  - Arthralgia [Recovered/Resolved]
  - Arthralgia [Recovered/Resolved]
  - Fatigue [Recovered/Resolved]
  - Rash [Recovered/Resolved]
  - Dry skin [Recovered/Resolved]
  - Palmar-plantar erythrodysaesthesia syndrome [Recovered/Resolved]
  - Fatigue [Recovered/Resolved]
  - Cough [Recovered/Resolved]
  - Fatigue [Recovered/Resolved]
  - Influenza like illness [Recovered/Resolved]
  - Rash [Recovered/Resolved]
  - Cough [Recovered/Resolved]
  - Fatigue [Recovered/Resolved]

NARRATIVE: CASE EVENT DATE: 20170104
